FAERS Safety Report 8810481 (Version 1)
Quarter: 2012Q4

REPORT INFORMATION
  Report Type: 
  Country: US (occurrence: US)
  Receive Date: 20120927
  Receipt Date: 20120927
  Transmission Date: 20130627
  Serious: Yes (Hospitalization)
  Sender: FDA-Public Use
  Company Number: US-BIOGENIDEC-2012BI040513

PATIENT
  Age: 47 Year
  Sex: Female

DRUGS (4)
  1. AVONEX [Suspect]
     Indication: MULTIPLE SCLEROSIS
     Route: 030
     Dates: start: 201101, end: 2011
  2. AVONEX [Suspect]
     Indication: MULTIPLE SCLEROSIS
     Route: 030
     Dates: start: 20111214
  3. AMPYRA [Concomitant]
     Dates: start: 20111217
  4. GILENYA [Concomitant]

REACTIONS (9)
  - Loss of consciousness [Recovered/Resolved]
  - General symptom [Recovered/Resolved]
  - Peroneal nerve palsy [Not Recovered/Not Resolved]
  - Eye discharge [Recovered/Resolved]
  - Oral mucosal eruption [Recovered/Resolved]
  - Suicidal ideation [Recovered/Resolved]
  - Injection site pain [Recovered/Resolved]
  - Dizziness [Recovered/Resolved]
  - Urticaria [Not Recovered/Not Resolved]
